FAERS Safety Report 15470673 (Version 1)
Quarter: 2018Q4

REPORT INFORMATION
  Report Type: Report from Study
  Country: US (occurrence: US)
  Receive Date: 20181005
  Receipt Date: 20181005
  Transmission Date: 20190205
  Serious: Yes (Death)
  Sender: FDA-Public Use
  Company Number: US-ACTELION-A-US2017-149588

PATIENT
  Age: 69 Year
  Sex: Female
  Weight: 50.79 kg

DRUGS (9)
  1. OXYGEN. [Concomitant]
     Active Substance: OXYGEN
  2. OPSUMIT [Concomitant]
     Active Substance: MACITENTAN
  3. SILDENAFIL CITRATE. [Concomitant]
     Active Substance: SILDENAFIL CITRATE
  4. VENTAVIS [Suspect]
     Active Substance: ILOPROST
     Dosage: 2.5 MG, 4-5 XDAILY
     Route: 055
  5. VENTAVIS [Suspect]
     Active Substance: ILOPROST
     Indication: PULMONARY ARTERIAL HYPERTENSION
     Dosage: 2.5 MCG, 6-9X PER DAY
     Route: 055
     Dates: start: 20170203
  6. VENTAVIS [Suspect]
     Active Substance: ILOPROST
     Dosage: 5 MCG, 6-9X PER DAY
     Route: 055
  7. VENTAVIS [Suspect]
     Active Substance: ILOPROST
     Dosage: 5 MCG, 4-9 TIMES DAILY
     Route: 055
  8. VENTAVIS [Suspect]
     Active Substance: ILOPROST
     Dosage: 2.5 MCG, 6-9X PER DAY
     Route: 055
  9. ESBRIET [Concomitant]
     Active Substance: PIRFENIDONE

REACTIONS (12)
  - Drug intolerance [Unknown]
  - Headache [Recovered/Resolved]
  - Pain in jaw [Unknown]
  - Death [Fatal]
  - Dizziness postural [Unknown]
  - Migraine [Unknown]
  - Thirst [Unknown]
  - Dyspnoea [Unknown]
  - Somnolence [Unknown]
  - Dizziness [Unknown]
  - Palpitations [Recovered/Resolved]
  - Nausea [Unknown]

NARRATIVE: CASE EVENT DATE: 2018
